FAERS Safety Report 16324941 (Version 2)
Quarter: 2019Q3

REPORT INFORMATION
  Report Type: Spontaneous
  Country: IT (occurrence: IT)
  Receive Date: 20190517
  Receipt Date: 20190703
  Transmission Date: 20191004
  Serious: Yes (Hospitalization)
  Sender: FDA-Public Use
  Company Number: PHHY2019IT111144

PATIENT
  Age: 1 Year
  Sex: Male
  Weight: 13 kg

DRUGS (1)
  1. AMOXICILLIN TRIHYDRATE [Suspect]
     Active Substance: AMOXICILLIN
     Indication: INFECTION
     Dosage: 2 G, QD
     Route: 048
     Dates: start: 20190403

REACTIONS (3)
  - Rash [Recovering/Resolving]
  - Medication error [Recovering/Resolving]
  - Product preparation error [Recovering/Resolving]

NARRATIVE: CASE EVENT DATE: 20190419
